FAERS Safety Report 17401684 (Version 1)
Quarter: 2020Q1

REPORT INFORMATION
  Report Type: Spontaneous
  Country: US (occurrence: US)
  Receive Date: 20200209
  Receipt Date: 20200209
  Transmission Date: 20200409
  Serious: Yes (Other)
  Sender: FDA-Public Use
  Company Number: None

PATIENT
  Age: 71 Year
  Sex: Female
  Weight: 42.3 kg

DRUGS (1)
  1. LIDOCAINE. [Suspect]
     Active Substance: LIDOCAINE

REACTIONS (5)
  - Weight decreased [None]
  - Feeding disorder [None]
  - Hypoaesthesia oral [None]
  - Pharyngeal hypoaesthesia [None]
  - Post procedural complication [None]

NARRATIVE: CASE EVENT DATE: 20200204
